FAERS Safety Report 4413505-4 (Version None)
Quarter: 2004Q3

REPORT INFORMATION
  Report Type: 
  Country: None (occurrence: None)
  Receive Date: 20040728
  Receipt Date: 20040713
  Transmission Date: 20050211
  Serious: Yes (Hospitalization)
  Sender: FDA-Public Use
  Company Number: USA040259902

PATIENT
  Age: 66 Year
  Sex: Female

DRUGS (6)
  1. FORTEO [Suspect]
     Indication: OSTEOPOROSIS
     Dosage: 20 U DAY
  2. ATENOLOL [Concomitant]
  3. PROTONIX [Concomitant]
  4. CARDURA [Concomitant]
  5. FOLIC ACID [Concomitant]
  6. VASOTEC [Concomitant]

REACTIONS (3)
  - PHARMACEUTICAL PRODUCT COMPLAINT [None]
  - PNEUMONIA [None]
  - URINARY TRACT INFECTION [None]
